FAERS Safety Report 24374988 (Version 3)
Quarter: 2024Q4

REPORT INFORMATION
  Report Type: Spontaneous
  Country: JP (occurrence: JP)
  Receive Date: 20240927
  Receipt Date: 20241227
  Transmission Date: 20250115
  Serious: Yes (Hospitalization, Other)
  Sender: BRISTOL-MYERS SQUIBB COMPANY
  Company Number: JP-BRISTOL-MYERS SQUIBB COMPANY-2024-151223

PATIENT
  Age: 91 Year
  Sex: Male

DRUGS (2)
  1. REVLIMID [Suspect]
     Active Substance: LENALIDOMIDE
     Indication: Product used for unknown indication
     Dosage: DOSE : 2 CAPSULES;     FREQ : AFTER BREAK FAST, 3 WEEKS ON, 1WEEK OFF/COURSE
     Route: 048
     Dates: start: 20240727, end: 20240814
  2. REVLIMID [Suspect]
     Active Substance: LENALIDOMIDE
     Dosage: DOSE : 2 CAPSULES;     FREQ : AFTER BREAK FAST, 3 WEEKS ON, 1WEEK OFF/COURSE
     Route: 048
     Dates: start: 20240824, end: 20240911

REACTIONS (4)
  - Depressed level of consciousness [Unknown]
  - Product use issue [Unknown]
  - Choking [Unknown]
  - Decreased appetite [Unknown]

NARRATIVE: CASE EVENT DATE: 20240801
